FAERS Safety Report 9515307 (Version 4)
Quarter: 2014Q1

REPORT INFORMATION
  Report Type: Spontaneous
  Country: FR (occurrence: FR)
  Receive Date: 20130911
  Receipt Date: 20140120
  Transmission Date: 20141002
  Serious: Yes (Hospitalization)
  Sender: FDA-Public Use
  Company Number: FR-SANOFI-AVENTIS-2013SA088365

PATIENT
  Age: 52 Year
  Sex: Male

DRUGS (9)
  1. IMOVANE [Suspect]
     Indication: INSOMNIA
     Route: 048
     Dates: start: 201306
  2. PARACETAMOL [Suspect]
     Indication: PAIN
     Route: 048
     Dates: start: 201304
  3. LOVENOX [Suspect]
     Indication: THROMBOSIS PROPHYLAXIS
     Route: 058
     Dates: start: 201304
  4. INEXIUM [Suspect]
     Indication: ABDOMINAL PAIN UPPER
     Route: 048
     Dates: start: 201304
  5. COVERSYL [Suspect]
     Indication: HYPERTENSION
     Route: 048
     Dates: start: 201304
  6. CLAIRYG [Suspect]
     Indication: GUILLAIN-BARRE SYNDROME
     Route: 042
     Dates: start: 20130730, end: 20130803
  7. CLAIRYG [Suspect]
     Indication: GUILLAIN-BARRE SYNDROME
     Route: 042
     Dates: start: 20130730, end: 20130803
  8. CLAIRYG [Suspect]
     Indication: GUILLAIN-BARRE SYNDROME
     Route: 042
     Dates: start: 20130730, end: 20130803
  9. DIFFU K [Concomitant]
     Route: 048

REACTIONS (1)
  - Neutropenia [Recovered/Resolved]
